FAERS Safety Report 4283078-8 (Version None)
Quarter: 2004Q1

REPORT INFORMATION
  Report Type: 
  Country: None (occurrence: None)
  Receive Date: 20040129
  Receipt Date: 20040116
  Transmission Date: 20041129
  Serious: Yes (Other)
  Sender: FDA-Public Use
  Company Number: 2004003973

PATIENT
  Age: 43 Year
  Sex: Male

DRUGS (1)
  1. LIPITOR [Suspect]
     Indication: BLOOD CHOLESTEROL
     Dosage: ORAL
     Route: 048
     Dates: start: 20010101, end: 20010301

REACTIONS (5)
  - BLOOD GLUCOSE INCREASED [None]
  - POLLAKIURIA [None]
  - THIRST [None]
  - VISION BLURRED [None]
  - WEIGHT DECREASED [None]
